FAERS Safety Report 12990429 (Version 2)
Quarter: 2016Q4

REPORT INFORMATION
  Report Type: Spontaneous
  Country: CN (occurrence: CN)
  Receive Date: 20161201
  Receipt Date: 20161229
  Transmission Date: 20170207
  Serious: Yes (Hospitalization)
  Sender: FDA-Public Use
  Company Number: CN-SA-2016SA214447

PATIENT
  Age: 57 Year
  Sex: Female
  Weight: 55 kg

DRUGS (1)
  1. PLAVIX [Suspect]
     Active Substance: CLOPIDOGREL BISULFATE
     Indication: CARDIAC DISORDER
     Route: 048
     Dates: start: 201609

REACTIONS (2)
  - Cardiac disorder [Recovered/Resolved]
  - Suspected counterfeit product [Unknown]

NARRATIVE: CASE EVENT DATE: 201611
